FAERS Safety Report 6460643-0 (Version None)
Quarter: 2009Q4

REPORT INFORMATION
  Report Type: 
  Country: None (occurrence: None)
  Receive Date: 20091130
  Receipt Date: 20091125
  Transmission Date: 20100525
  Serious: Yes (Death)
  Sender: FDA-Public Use
  Company Number: JP-JNJFOC-20090900094

PATIENT
  Age: 82 Year
  Sex: Female

DRUGS (4)
  1. RISPERDAL [Suspect]
     Route: 048
  2. RISPERDAL [Suspect]
     Route: 048
  3. RISPERDAL [Suspect]
     Route: 048
  4. RISPERDAL [Suspect]
     Indication: RESTLESSNESS
     Dosage: 6 TO 7 YEARS AGO
     Route: 048

REACTIONS (9)
  - AKINESIA [None]
  - APHONIA [None]
  - CONTUSION [None]
  - DEATH [None]
  - DIARRHOEA [None]
  - PURPURA [None]
  - SLEEP DISORDER [None]
  - THIRST [None]
  - UNRESPONSIVE TO STIMULI [None]
